FAERS Safety Report 23272949 (Version 4)
Quarter: 2025Q1

REPORT INFORMATION
  Report Type: Spontaneous
  Country: US (occurrence: None)
  Receive Date: 20231207
  Receipt Date: 20250314
  Transmission Date: 20250408
  Serious: No
  Sender: INCYTE
  Company Number: US-INCYTE CORPORATION-2023IN012581

PATIENT
  Age: 86 Year

DRUGS (2)
  1. JAKAFI [Suspect]
     Active Substance: RUXOLITINIB
     Indication: Myelofibrosis
     Dosage: 15 MILLIGRAM, BID
  2. JAKAFI [Suspect]
     Active Substance: RUXOLITINIB
     Dosage: 10 MILLIGRAM, BID

REACTIONS (9)
  - Pain [Unknown]
  - Anorectal discomfort [Unknown]
  - Dyschezia [Unknown]
  - Abnormal faeces [Unknown]
  - Abdominal distension [Unknown]
  - Peripheral swelling [Unknown]
  - Cyanosis [Unknown]
  - Constipation [Unknown]
  - Flatulence [Unknown]
